FAERS Safety Report 5692369-5 (Version None)
Quarter: 2008Q1

REPORT INFORMATION
  Report Type: 
  Country: None (occurrence: None)
  Receive Date: 20080331
  Receipt Date: 20080305
  Transmission Date: 20080703
  Serious: Yes (Hospitalization)
  Sender: FDA-Public Use
  Company Number: 229-C5013-07120614

PATIENT
  Age: 74 Year
  Sex: Female
  Weight: 56.1 kg

DRUGS (15)
  1. CC-5013 (LENALIDOMIDE) (CAPSULES) [Suspect]
     Indication: MULTIPLE MYELOMA
     Dosage: ORAL; 25 MG, OD, ORAL; 10 MG, OD, ORAL
     Route: 048
     Dates: start: 20070628, end: 20071015
  2. CC-5013 (LENALIDOMIDE) (CAPSULES) [Suspect]
     Indication: MULTIPLE MYELOMA
     Dosage: ORAL; 25 MG, OD, ORAL; 10 MG, OD, ORAL
     Route: 048
     Dates: start: 20071105, end: 20071207
  3. CC-5013 (LENALIDOMIDE) (CAPSULES) [Suspect]
     Indication: MULTIPLE MYELOMA
     Dosage: ORAL; 25 MG, OD, ORAL; 10 MG, OD, ORAL
     Route: 048
     Dates: start: 20080118
  4. DEXAMETHASONE TAB [Suspect]
     Indication: MULTIPLE MYELOMA
     Dosage: 40 MG, OD D1-4, ORAL
     Route: 048
     Dates: start: 20070628, end: 20071203
  5. G-CSF   (GRANULOCYTE COLONY STIMULATING FACTOR) [Concomitant]
  6. VANCOMYCIN           (VANCOMYCIN) (500 MILLIGRAM) [Concomitant]
  7. NEORECORMIN        (EPOETIN BETA) [Concomitant]
  8. ENOXAPARIN     (ENOXAPARIN) (20 MILLIGRAM) [Concomitant]
  9. METOPROLOL TARTRATE [Concomitant]
  10. SANDOZ K    (POTASSIUM CHLORIDE) [Concomitant]
  11. VALCYCLOVIR         (VALACICLOVIR) [Concomitant]
  12. DIFLUCAN [Concomitant]
  13. ASCORBIC ACID [Concomitant]
  14. BACTROBAN   (MUPIROCIN) (OINTMENT) [Concomitant]
  15. ASPIRIN [Concomitant]

REACTIONS (19)
  - ATRIAL FIBRILLATION [None]
  - BLOOD POTASSIUM DECREASED [None]
  - CARDIOMEGALY [None]
  - CONSTIPATION [None]
  - DEAFNESS [None]
  - HAEMODIALYSIS [None]
  - HAEMOGLOBIN DECREASED [None]
  - HERPES SIMPLEX [None]
  - HYPERTHYROIDISM [None]
  - HYPOTENSION [None]
  - MUCOSAL INFLAMMATION [None]
  - NEUTROPENIC SEPSIS [None]
  - ORAL DISORDER [None]
  - PNEUMONIA [None]
  - PULMONARY OEDEMA [None]
  - RENAL FAILURE ACUTE [None]
  - SCAB [None]
  - STAPHYLOCOCCAL INFECTION [None]
  - THROMBOCYTOPENIA [None]
